FAERS Safety Report 9604211 (Version 1)
Quarter: 2013Q4

REPORT INFORMATION
  Report Type: Spontaneous
  Country: US (occurrence: None)
  Receive Date: 20131003
  Receipt Date: 20131003
  Transmission Date: 20140711
  Serious: Yes (Hospitalization)
  Sender: FDA-Public Use
  Company Number: SP07064

PATIENT
  Age: 60 Year
  Sex: Male
  Weight: 118.8 kg

DRUGS (5)
  1. XIFAXAN [Suspect]
     Route: 048
  2. INSULIN [Concomitant]
  3. LACTULOSE [Concomitant]
  4. ZOFRAN [Concomitant]
  5. ACETAMINOPHEN [Concomitant]

REACTIONS (2)
  - Confusional state [None]
  - Ammonia increased [None]
